FAERS Safety Report 7803749-3 (Version None)
Quarter: 2011Q4

REPORT INFORMATION
  Report Type: 
  Country: None (occurrence: None)
  Receive Date: 20111010
  Receipt Date: 20111004
  Transmission Date: 20120403
  Serious: Yes (Other)
  Sender: FDA-Public Use
  Company Number: US-PFIZER INC-2011237182

PATIENT
  Sex: Female
  Weight: 41.2 kg

DRUGS (1)
  1. IBUPROFEN (ADVIL) [Suspect]
     Indication: PAIN
     Dosage: UNK
     Route: 065

REACTIONS (3)
  - CARDIAC FAILURE CONGESTIVE [None]
  - PULMONARY OEDEMA [None]
  - FLUID RETENTION [None]
